FAERS Safety Report 6709657-3 (Version None)
Quarter: 2010Q2

REPORT INFORMATION
  Report Type: 
  Country: None (occurrence: None)
  Receive Date: 20100430
  Receipt Date: 20100416
  Transmission Date: 20101027
  Serious: Yes (Death, Hospitalization)
  Sender: FDA-Public Use
  Company Number: POMP-1000349

PATIENT
  Age: 9 Month
  Sex: Female

DRUGS (1)
  1. MYOZYME [Suspect]
     Indication: GLYCOGEN STORAGE DISEASE TYPE II
     Dosage: 20 MG/KG, Q2W,
     Dates: start: 20070716, end: 20071120

REACTIONS (3)
  - CARDIAC FAILURE [None]
  - PNEUMONIA [None]
  - RESPIRATORY TRACT INFECTION [None]
